FAERS Safety Report 25768466 (Version 2)
Quarter: 2025Q4

REPORT INFORMATION
  Report Type: Spontaneous
  Country: US (occurrence: US)
  Receive Date: 20250905
  Receipt Date: 20251111
  Transmission Date: 20260118
  Serious: No
  Sender: PFIZER
  Company Number: US-PFIZER INC-202500176100

PATIENT
  Age: 12 Year
  Sex: Male

DRUGS (2)
  1. EUCRISA [Suspect]
     Active Substance: CRISABOROLE
     Indication: Eczema
     Dosage: 1 APPLICATION TWICE DAILY FOR ECZEMA FLARES ON FACE, NECK, ARMS, TORSO AND LEGS
  2. EUCRISA [Suspect]
     Active Substance: CRISABOROLE
     Dosage: THEN DECREASE TO ONCE DAILY TO PREVENT RETURN

REACTIONS (2)
  - Skin infection [Unknown]
  - Condition aggravated [Not Recovered/Not Resolved]
